FAERS Safety Report 8065617-4 (Version None)
Quarter: 2012Q1

REPORT INFORMATION
  Report Type: 
  Country: None (occurrence: None)
  Receive Date: 20120117
  Receipt Date: 20120103
  Transmission Date: 20120608
  Serious: Yes (Hospitalization)
  Sender: FDA-Public Use
  Company Number: 1000026948

PATIENT
  Age: 84 Year
  Sex: Female

DRUGS (6)
  1. EXELON [Suspect]
     Indication: DEMENTIA ALZHEIMER'S TYPE
     Dates: start: 20110218, end: 20110220
  2. APROVEL (IRBESARTAN) (75 MILLIGRAM) (IRBESARTAN) [Concomitant]
  3. ESCITALOPRAM OXALATE [Suspect]
     Indication: ANXIETY
     Dates: start: 20110218, end: 20110220
  4. BETASERC (BETAHISTINE) (24 MILLIGRAM, TABLETS) (BETAHISTINE) [Concomitant]
  5. VASTAREL (TRIMETAZIDINE HYDROCHLORIDE) (TRIMETAZIDINE HYDROCHLORIDE) [Concomitant]
  6. TANAKAN (GINKGO BILOBA EXTRACT) (GINKGO BILOBA EXTRACT) [Concomitant]

REACTIONS (10)
  - FALL [None]
  - MALAISE [None]
  - NYSTAGMUS [None]
  - AORTIC ARTERIOSCLEROSIS [None]
  - ATRIAL FIBRILLATION [None]
  - VOMITING [None]
  - CONDITION AGGRAVATED [None]
  - LOSS OF CONSCIOUSNESS [None]
  - EPILEPSY [None]
  - DIZZINESS [None]
